FAERS Safety Report 16898933 (Version 1)
Quarter: 2019Q4

REPORT INFORMATION
  Report Type: Spontaneous
  Country: US (occurrence: PR)
  Receive Date: 20191008
  Receipt Date: 20191008
  Transmission Date: 20200122
  Serious: Yes (Other)
  Sender: FDA-Public Use
  Company Number: None

PATIENT
  Age: 48 Year
  Sex: Female
  Weight: 78.75 kg

DRUGS (6)
  1. SYNTHROID [Concomitant]
     Active Substance: LEVOTHYROXINE SODIUM
  2. CAPSAICIN. [Suspect]
     Active Substance: CAPSAICIN
     Indication: ARTHRALGIA
     Dosage: ?          QUANTITY:1 APPLICATION;?
     Route: 061
     Dates: start: 20191007
  3. CRESTOR [Concomitant]
     Active Substance: ROSUVASTATIN CALCIUM
  4. TELMISARTAN. [Concomitant]
     Active Substance: TELMISARTAN
  5. VITAMIN D [Concomitant]
     Active Substance: VITAMIN D NOS
  6. BENGAY ARTHRITIS PAIN RELIEVING [Concomitant]
     Active Substance: MENTHOL\METHYL SALICYLATE

REACTIONS (2)
  - Application site pain [None]
  - Application site discolouration [None]

NARRATIVE: CASE EVENT DATE: 20191007
